FAERS Safety Report 12879574 (Version 1)
Quarter: 2016Q4

REPORT INFORMATION
  Report Type: Spontaneous
  Country: CN (occurrence: CN)
  Receive Date: 20161025
  Receipt Date: 20161025
  Transmission Date: 20170207
  Serious: Yes (Other)
  Sender: FDA-Public Use
  Company Number: CN-PFIZER INC-2016494043

PATIENT
  Age: 54 Year
  Sex: Female

DRUGS (1)
  1. LIPITOR [Suspect]
     Active Substance: ATORVASTATIN CALCIUM
     Indication: HYPERLIPIDAEMIA
     Dosage: 20 MG, 1X/DAY
     Route: 048
     Dates: start: 20160628, end: 20160705

REACTIONS (2)
  - Cholecystitis acute [Unknown]
  - Liver function test abnormal [Recovering/Resolving]

NARRATIVE: CASE EVENT DATE: 20160705
